FAERS Safety Report 17358666 (Version 2)
Quarter: 2020Q1

REPORT INFORMATION
  Report Type: Spontaneous
  Country: US (occurrence: US)
  Receive Date: 20200201
  Receipt Date: 20200328
  Transmission Date: 20200409
  Serious: Yes (Death, Life-Threatening, Hospitalization)
  Sender: FDA-Public Use
  Company Number: US-TEVA-2020-US-1175495

PATIENT
  Age: 21 Year
  Sex: Female

DRUGS (2)
  1. VENLAFAXINE [Suspect]
     Active Substance: VENLAFAXINE HYDROCHLORIDE
     Indication: SUICIDE ATTEMPT
     Dosage: FORMULATION: EXTENDED RELEASE
     Route: 065
  2. SERTRALINE [Suspect]
     Active Substance: SERTRALINE HYDROCHLORIDE
     Indication: SUICIDE ATTEMPT
     Dosage: FORMULATION: EXTENDED RELEASE
     Route: 065

REACTIONS (8)
  - Brain death [Fatal]
  - Encephalopathy [Fatal]
  - Cardiac arrest [Recovered/Resolved]
  - Cardiogenic shock [Recovered/Resolved]
  - Generalised tonic-clonic seizure [Fatal]
  - Multiple organ dysfunction syndrome [Fatal]
  - Suicide attempt [Fatal]
  - Intentional overdose [Unknown]
